FAERS Safety Report 15272160 (Version 1)
Quarter: 2018Q3

REPORT INFORMATION
  Report Type: Report from Study
  Country: None (occurrence: CA)
  Receive Date: 20180813
  Receipt Date: 20180813
  Transmission Date: 20181010
  Serious: Yes (Other)
  Sender: FDA-Public Use
  Company Number: CA-ABBVIE-18S-028-2447150-00

PATIENT
  Age: 27 Year
  Sex: Female

DRUGS (1)
  1. LUPRON DEPOT [Suspect]
     Active Substance: LEUPROLIDE ACETATE
     Indication: UTERINE LEIOMYOMA
     Route: 030
     Dates: start: 20180601, end: 20180601

REACTIONS (6)
  - Drug ineffective [Recovered/Resolved]
  - Hot flush [Recovered/Resolved]
  - Haemoglobin abnormal [Recovered/Resolved]
  - Headache [Recovered/Resolved]
  - Vaginal haemorrhage [Unknown]
  - Hysterectomy [Recovered/Resolved]

NARRATIVE: CASE EVENT DATE: 2018
